FAERS Safety Report 25107739 (Version 1)
Quarter: 2025Q1

REPORT INFORMATION
  Report Type: Spontaneous
  Country: US (occurrence: US)
  Receive Date: 20250322
  Receipt Date: 20250322
  Transmission Date: 20250409
  Serious: No
  Sender: AMGEN
  Company Number: US-AMGEN-USASP2025053230

PATIENT
  Sex: Female

DRUGS (8)
  1. TALIMOGENE LAHERPAREPVEC [Suspect]
     Active Substance: TALIMOGENE LAHERPAREPVEC
     Indication: Basal cell carcinoma
     Route: 026
  2. TALIMOGENE LAHERPAREPVEC [Suspect]
     Active Substance: TALIMOGENE LAHERPAREPVEC
     Indication: Off label use
  3. VISMODEGIB [Concomitant]
     Active Substance: VISMODEGIB
  4. CEMIPLIMAB [Concomitant]
     Active Substance: CEMIPLIMAB
     Dosage: 350 MILLIGRAM, Q3WK
  5. SONIDEGIB [Concomitant]
     Active Substance: SONIDEGIB
  6. ITRACONAZOLE [Concomitant]
     Active Substance: ITRACONAZOLE
  7. CARBOPLATIN [Concomitant]
     Active Substance: CARBOPLATIN
  8. PACLITAXEL [Concomitant]
     Active Substance: PACLITAXEL

REACTIONS (4)
  - Fatigue [Unknown]
  - Diarrhoea [Unknown]
  - Drug effective for unapproved indication [Unknown]
  - Off label use [Unknown]
